FAERS Safety Report 16294729 (Version 1)
Quarter: 2019Q2

REPORT INFORMATION
  Report Type: Spontaneous
  Country: US (occurrence: US)
  Receive Date: 20190509
  Receipt Date: 20190509
  Transmission Date: 20190711
  Serious: No
  Sender: FDA-Public Use
  Company Number: US-ROCHE-2209993

PATIENT
  Sex: Male

DRUGS (1)
  1. ESBRIET [Suspect]
     Active Substance: PIRFENIDONE
     Indication: IDIOPATHIC PULMONARY FIBROSIS
     Dosage: TAKE ONE 267 MG TABLETS THRICE A DAY (TID) FOR ONE WEEK, THEN TWO 267 MG TABLETS TID FOR A WEEK FOLL
     Route: 048
     Dates: start: 20180926

REACTIONS (1)
  - Nausea [Unknown]
